FAERS Safety Report 26067027 (Version 1)
Quarter: 2025Q4

REPORT INFORMATION
  Report Type: Report from Study
  Country: US (occurrence: US)
  Receive Date: 20251119
  Receipt Date: 20251119
  Transmission Date: 20260117
  Serious: Yes (Other)
  Sender: TAKEDA
  Company Number: US-TAKEDA-2025TUS102340

PATIENT
  Age: 73 Year
  Sex: Female

DRUGS (1)
  1. VEDOLIZUMAB [Suspect]
     Active Substance: VEDOLIZUMAB
     Indication: Colitis ulcerative
     Dosage: 300 MILLIGRAM

REACTIONS (9)
  - Skin cancer [Unknown]
  - Glaucoma [Unknown]
  - Multiple sclerosis [Unknown]
  - Arthritis [Unknown]
  - Large intestine polyp [Unknown]
  - COVID-19 [Unknown]
  - Hyperlipidaemia [Unknown]
  - Pollakiuria [Unknown]
  - Hypertension [Unknown]
